FAERS Safety Report 11398461 (Version 1)
Quarter: 2015Q3

REPORT INFORMATION
  Report Type: Spontaneous
  Country: RS (occurrence: None)
  Receive Date: 20150818
  Receipt Date: 20150818
  Transmission Date: 20151125
  Serious: Yes (Congenital Anomaly, Other)
  Sender: FDA-Public Use
  Company Number: ABR_02334_2015

PATIENT

DRUGS (2)
  1. LAMOTRIGINE (LAMOTRIGINE) [Suspect]
     Active Substance: LAMOTRIGINE
     Indication: MATERNAL EXPOSURE DURING PREGNANCY
     Dosage: 150-300MG/DAY TRANSPLACENTAL
     Route: 064
  2. VALPROIC ACID (VALPORATE-VPA) [Suspect]
     Active Substance: VALPROIC ACID
     Indication: MATERNAL EXPOSURE DURING PREGNANCY
     Dosage: 750-15000 MG/DAY TRANSPLACENTAL)
     Route: 064

REACTIONS (4)
  - Foetal exposure during pregnancy [None]
  - Deafness neurosensory [None]
  - Deafness unilateral [None]
  - Maternal drugs affecting foetus [None]
